FAERS Safety Report 17670175 (Version 1)
Quarter: 2020Q2

REPORT INFORMATION
  Report Type: Spontaneous
  Country: US (occurrence: US)
  Receive Date: 20200414
  Receipt Date: 20200414
  Transmission Date: 20200713
  Serious: No
  Sender: FDA-Public Use
  Company Number: None

PATIENT
  Age: 65 Year
  Sex: Female

DRUGS (1)
  1. CIMZIA [Suspect]
     Active Substance: CERTOLIZUMAB PEGOL
     Indication: PSORIASIS
     Dosage: FREQUENCY: Q 2 WEEKS
     Route: 058
     Dates: start: 201910, end: 202002

REACTIONS (1)
  - Rash [None]

NARRATIVE: CASE EVENT DATE: 20200102
